FAERS Safety Report 4277567-X (Version None)
Quarter: 2004Q1

REPORT INFORMATION
  Report Type: 
  Country: None (occurrence: None)
  Receive Date: 20040121
  Receipt Date: 20040113
  Transmission Date: 20041129
  Serious: No
  Sender: FDA-Public Use
  Company Number: 04H-163-0247056-00

PATIENT
  Sex: 0

DRUGS (2)
  1. SODIUM CHLORIDE [Suspect]
     Indication: CENTRAL VENOUS CATHETERISATION
     Dosage: INTRAVENOUS
     Route: 042
     Dates: start: 20030724, end: 20030724
  2. SODIUM CHLORIDE [Suspect]
     Indication: CENTRAL VENOUS CATHETERISATION
     Dosage: INTRAVENOUS
     Route: 042
     Dates: start: 20030724, end: 20030724

REACTIONS (7)
  - BACK PAIN [None]
  - CHEST PAIN [None]
  - DYSPNOEA [None]
  - NECK PAIN [None]
  - SWELLING FACE [None]
  - TACHYCARDIA [None]
  - TACHYPNOEA [None]
